FAERS Safety Report 14497959 (Version 2)
Quarter: 2018Q1

REPORT INFORMATION
  Report Type: Report from Study
  Country: BE (occurrence: BE)
  Receive Date: 20180207
  Receipt Date: 20180312
  Transmission Date: 20180509
  Serious: Yes (Other)
  Sender: FDA-Public Use
  Company Number: PHHY2018BE014104

PATIENT
  Age: 50 Year
  Sex: Female
  Weight: 60 kg

DRUGS (1)
  1. ILARIS [Suspect]
     Active Substance: CANAKINUMAB
     Indication: TUMOUR NECROSIS FACTOR RECEPTOR-ASSOCIATED PERIODIC SYNDROME
     Dosage: 300 MG, UNK
     Route: 058
     Dates: start: 20140930, end: 20171207

REACTIONS (8)
  - Hyperinsulinism [Unknown]
  - Iron deficiency anaemia [Unknown]
  - Anal fistula [Unknown]
  - Crohn^s disease [Not Recovered/Not Resolved]
  - Anal fissure haemorrhage [Unknown]
  - Hypoglycaemia [Unknown]
  - Abdominal pain [Unknown]
  - Anaemia vitamin B12 deficiency [Unknown]

NARRATIVE: CASE EVENT DATE: 20141211
